FAERS Safety Report 24015597 (Version 1)
Quarter: 2024Q2

REPORT INFORMATION
  Report Type: Spontaneous
  Country: US (occurrence: US)
  Receive Date: 20240626
  Receipt Date: 20240626
  Transmission Date: 20240716
  Serious: Yes (Other)
  Sender: FDA-Public Use
  Company Number: US-PURDUE PHARMA-USA-2024-0310399

PATIENT

DRUGS (1)
  1. OXYCODONE HYDROCHLORIDE [Suspect]
     Active Substance: OXYCODONE HYDROCHLORIDE
     Indication: Analgesic therapy
     Dosage: 15 MILLIGRAM
     Route: 048

REACTIONS (6)
  - Autonomic dysreflexia [Unknown]
  - Condition aggravated [Unknown]
  - Reduced facial expression [Unknown]
  - Therapeutic response changed [Unknown]
  - Speech disorder [Unknown]
  - Product substitution issue [Unknown]
